FAERS Safety Report 24807796 (Version 1)
Quarter: 2025Q1

REPORT INFORMATION
  Report Type: Spontaneous
  Country: US (occurrence: US)
  Receive Date: 20250106
  Receipt Date: 20250106
  Transmission Date: 20250409
  Serious: No
  Sender: ROCHE
  Company Number: US-ROCHE-10000169109

PATIENT
  Age: 26 Year
  Sex: Female

DRUGS (8)
  1. XOLAIR PFS [Suspect]
     Active Substance: OMALIZUMAB
     Indication: Asthma
     Dosage: 2 OF 150MG, IN THE BACK OF THE ARM?STRENGTH: 150MG/ML
     Route: 058
     Dates: start: 2023
  2. XOLAIR PFS [Suspect]
     Active Substance: OMALIZUMAB
  3. WELLBUTRIN [Concomitant]
     Active Substance: BUPROPION HYDROCHLORIDE
     Indication: Attention deficit hyperactivity disorder
     Dosage: IN THE MORNING
     Route: 048
     Dates: start: 2023
  4. ALBUTEROL SULFATE [Concomitant]
     Active Substance: ALBUTEROL SULFATE
     Indication: Asthma
     Route: 055
     Dates: start: 2020
  5. SYMBICORT [Concomitant]
     Active Substance: BUDESONIDE\FORMOTEROL FUMARATE DIHYDRATE
     Indication: Asthma
     Route: 055
     Dates: start: 202412
  6. SYMBICORT [Concomitant]
     Active Substance: BUDESONIDE\FORMOTEROL FUMARATE DIHYDRATE
     Route: 055
     Dates: start: 2017, end: 2020
  7. CLONIDINE [Concomitant]
     Active Substance: CLONIDINE
     Indication: Insomnia
     Dosage: AT NIGHT
     Route: 048
     Dates: start: 2024
  8. CLONIDINE [Concomitant]
     Active Substance: CLONIDINE
     Route: 048
     Dates: start: 2024, end: 2024

REACTIONS (9)
  - Dyspnoea [Recovering/Resolving]
  - Cough [Recovering/Resolving]
  - Insomnia [Unknown]
  - Off label use [Unknown]
  - Device leakage [Unknown]
  - Underdose [Unknown]
  - Accidental exposure to product [Unknown]
  - Device defective [Unknown]
  - Product complaint [Unknown]

NARRATIVE: CASE EVENT DATE: 20230101
